FAERS Safety Report 5558214-3 (Version None)
Quarter: 2007Q4

REPORT INFORMATION
  Report Type: 
  Country: None (occurrence: None)
  Receive Date: 20071214
  Receipt Date: 20071203
  Transmission Date: 20080405
  Serious: Yes (Other)
  Sender: FDA-Public Use
  Company Number: US-PFIZER INC-2007072630

PATIENT
  Sex: Male
  Weight: 117.9 kg

DRUGS (7)
  1. CHANTIX [Suspect]
     Indication: SMOKING CESSATION THERAPY
     Dates: start: 20070808, end: 20070827
  2. ZANTAC [Concomitant]
     Indication: GASTROOESOPHAGEAL REFLUX DISEASE
  3. LOTREL [Concomitant]
     Indication: HYPERTENSION
     Dosage: TEXT:10MG\40MG
  4. PREVACID [Concomitant]
     Indication: GASTROOESOPHAGEAL REFLUX DISEASE
  5. PERCOCET [Concomitant]
  6. ACETYLSALICYLIC ACID SRT [Concomitant]
  7. UDRAMIL [Concomitant]
     Indication: HYPERTENSION
     Dosage: TEXT:4MG\40MG

REACTIONS (7)
  - DYSARTHRIA [None]
  - FATIGUE [None]
  - HALLUCINATION [None]
  - HYPOAESTHESIA [None]
  - INSOMNIA [None]
  - NIGHTMARE [None]
  - THIRST [None]
